FAERS Safety Report 7482764-6 (Version None)
Quarter: 2011Q2

REPORT INFORMATION
  Report Type: 
  Country: None (occurrence: None)
  Receive Date: 20110516
  Receipt Date: 20110106
  Transmission Date: 20111010
  Serious: No
  Sender: FDA-Public Use
  Company Number: US-BAYER-2011-029750

PATIENT
  Age: 80 Year
  Sex: Female
  Weight: 57.143 kg

DRUGS (3)
  1. ASPIRIN [Concomitant]
  2. ALEVE (CAPLET) [Suspect]
     Indication: ARTHRALGIA
     Dosage: 1 DF, ONCE, BOTTLE COUNT 100S
     Route: 048
     Dates: start: 20110104
  3. SYNTHROID [Concomitant]

REACTIONS (3)
  - SKIN EXFOLIATION [None]
  - DRY SKIN [None]
  - BLISTER [None]
